FAERS Safety Report 20454600 (Version 1)
Quarter: 2022Q1

REPORT INFORMATION
  Report Type: Spontaneous
  Country: US (occurrence: US)
  Receive Date: 20220210
  Receipt Date: 20220210
  Transmission Date: 20220423
  Serious: Yes (Other)
  Sender: FDA-Public Use
  Company Number: US-ALKEM LABORATORIES LIMITED-US-ALKEM-2021-01475

PATIENT
  Age: 59 Year
  Sex: Male

DRUGS (1)
  1. LINEZOLID [Suspect]
     Active Substance: LINEZOLID
     Indication: Soft tissue infection
     Dosage: UNK
     Route: 065

REACTIONS (1)
  - Lactic acidosis [Recovered/Resolved]
